FAERS Safety Report 8784660 (Version 1)
Quarter: 2012Q4

REPORT INFORMATION
  Report Type: Spontaneous
  Country: US (occurrence: None)
  Receive Date: 20120830
  Receipt Date: 20120830
  Transmission Date: 20130627
  Serious: Yes (Other)
  Sender: FDA-Public Use
  Company Number: DKLU1084045

PATIENT
  Age: 19 Year
  Sex: Female

DRUGS (6)
  1. ELSPAR [Suspect]
  2. ARA-C [Suspect]
  3. METHOTREXATE [Suspect]
  4. VINCRISTINE [Suspect]
  5. VP-16 [Suspect]
  6. PREDNISONE (PREDNISONE) [Suspect]

REACTIONS (1)
  - Crohn^s disease [None]
